FAERS Safety Report 6723507-0 (Version None)
Quarter: 2010Q2

REPORT INFORMATION
  Report Type: 
  Country: None (occurrence: None)
  Receive Date: 20100513
  Receipt Date: 20090511
  Transmission Date: 20101027
  Serious: Yes (Other)
  Sender: FDA-Public Use
  Company Number: US-BAYER-200717095NA

PATIENT
  Age: 40 Year
  Sex: Male

DRUGS (2)
  1. MAGNEVIST [Suspect]
     Indication: NUCLEAR MAGNETIC RESONANCE IMAGING ABDOMINAL
     Dates: start: 20050801, end: 20050801
  2. MAGNEVIST [Suspect]
     Dates: start: 20060329, end: 20060329

REACTIONS (6)
  - ANXIETY [None]
  - ASTHENIA [None]
  - FIBROSIS [None]
  - NEPHROGENIC SYSTEMIC FIBROSIS [None]
  - PAIN [None]
  - SCLERODERMA [None]
